FAERS Safety Report 16672839 (Version 1)
Quarter: 2019Q3

REPORT INFORMATION
  Report Type: Spontaneous
  Country: US (occurrence: US)
  Receive Date: 20190806
  Receipt Date: 20190806
  Transmission Date: 20191004
  Serious: Yes (Hospitalization, Other)
  Sender: FDA-Public Use
  Company Number: US-TEVA-2019-US-1087262

PATIENT
  Age: 69 Year
  Sex: Male
  Weight: 116 kg

DRUGS (19)
  1. ASPIRIN. [Concomitant]
     Active Substance: ASPIRIN
     Indication: PAIN
     Route: 065
  2. IBUPROFEN. [Concomitant]
     Active Substance: IBUPROFEN
     Indication: PAIN
     Dosage: 600-800MG AS NEEDED
     Route: 065
  3. VANCOMYCIN [Concomitant]
     Active Substance: VANCOMYCIN
     Indication: ANTIBIOTIC THERAPY
     Dosage: ANTIBIOTIC SPACER CONTAINING VANCOMYCIN
     Route: 065
  4. GENTAMICIN. [Concomitant]
     Active Substance: GENTAMICIN
     Indication: ANTIBIOTIC THERAPY
     Dosage: ANTIBIOTIC SPACER CONTAINING GENTAMICIN
     Route: 065
  5. PIPERACILLIN AND TAZOBACTAM [Concomitant]
     Active Substance: PIPERACILLIN SODIUM\TAZOBACTAM SODIUM
     Indication: PNEUMONIA ASPIRATION
     Route: 042
  6. METHOTREXATE. [Suspect]
     Active Substance: METHOTREXATE
     Indication: PSORIATIC ARTHROPATHY
     Dosage: ON WEDNESDAYS AND SATURDAYS
     Route: 048
  7. AMPHOTERICIN [Concomitant]
     Active Substance: AMPHOTERICIN B
     Indication: ANTIBIOTIC THERAPY
     Dosage: ANTIBIOTIC SPACER CONTAINING AMPHOTERICIN
     Route: 065
  8. CELECOXIB. [Concomitant]
     Active Substance: CELECOXIB
     Dosage: 1 DOSE PRIOR TO SURGERY
     Route: 065
  9. LEVOFLOXACIN. [Concomitant]
     Active Substance: LEVOFLOXACIN
     Indication: ESCHERICHIA INFECTION
     Route: 048
  10. METRONIDAZOLE. [Concomitant]
     Active Substance: METRONIDAZOLE
     Indication: ANTIBIOTIC THERAPY
     Dosage: 3 TIMES DAILY
     Route: 048
  11. WARFARIN [Concomitant]
     Active Substance: WARFARIN
     Route: 065
  12. METHOTREXATE. [Interacting]
     Active Substance: METHOTREXATE
     Dosage: ON POSTOPERATIVE DAY 1, HE RECEIVED 1 DOSE
     Route: 048
  13. ESOMEPRAZOLE. [Concomitant]
     Active Substance: ESOMEPRAZOLE MAGNESIUM
     Route: 065
  14. ACETAMINOPHEN. [Concomitant]
     Active Substance: ACETAMINOPHEN
     Indication: PAIN
     Dosage: AS NEEDED
     Route: 065
  15. FOLIC ACID. [Concomitant]
     Active Substance: FOLIC ACID
     Route: 065
  16. SIMVASTATIN. [Concomitant]
     Active Substance: SIMVASTATIN
     Route: 065
  17. ERTAPENEM. [Concomitant]
     Active Substance: ERTAPENEM SODIUM
     Indication: ANTIBIOTIC THERAPY
     Dosage: STARTED IMMEDIATELY AFTER SURGERY
     Route: 042
  18. CEFTRIAXONE. [Interacting]
     Active Substance: CEFTRIAXONE
     Indication: ANTIBIOTIC THERAPY
     Dosage: STARTED ON POSTOPERATIVE DAY 1; LATER, ON POD4 GIVEN AT THE SAME DOSE ALONG WITH METRONIDAZOLE
     Route: 042
  19. VANCOMYCIN [Concomitant]
     Active Substance: VANCOMYCIN
     Indication: ANTIBIOTIC THERAPY
     Dosage: STARTED IMMEDIATELY AFTER SURGERY
     Route: 042

REACTIONS (5)
  - Drug interaction [Recovered/Resolved]
  - Escherichia infection [Unknown]
  - Arthritis infective [Unknown]
  - Streptococcal infection [Unknown]
  - Neutropenia [Recovered/Resolved]
